FAERS Safety Report 8237115-6 (Version None)
Quarter: 2012Q1

REPORT INFORMATION
  Report Type: 
  Country: None (occurrence: None)
  Receive Date: 20120327
  Receipt Date: 20120316
  Transmission Date: 20120608
  Serious: Yes (Death, Other)
  Sender: FDA-Public Use
  Company Number: US-CELGENEUS-163-21880-12031832

PATIENT
  Sex: Male
  Weight: 66 kg

DRUGS (19)
  1. PROTONIX [Concomitant]
     Dosage: 40 MILLIGRAM
     Route: 048
  2. REVLIMID [Suspect]
     Dosage: 10 MILLIGRAM
     Route: 048
     Dates: start: 20111018
  3. HYDROXYUREA [Concomitant]
     Dosage: 500 MILLIGRAM
     Route: 065
  4. PLATELETS [Concomitant]
     Indication: THROMBOCYTOPENIA
     Route: 041
  5. CEFEPIME [Concomitant]
     Route: 065
  6. HYDROXYUREA [Concomitant]
     Dosage: 500 MILLIGRAM
     Route: 065
  7. ENSURE PLUS [Concomitant]
     Dosage: 0.05-1.5 GRAM-KCAL/ML
     Route: 065
  8. MIRTAZAPINE [Concomitant]
     Dosage: 30 MILLIGRAM
     Route: 048
  9. REVLIMID [Suspect]
     Dosage: 10 MILLIGRAM
     Route: 048
     Dates: start: 20111114
  10. REVLIMID [Suspect]
     Dosage: 10 MILLIGRAM
     Route: 048
     Dates: start: 20120117
  11. TORADOL [Concomitant]
     Route: 065
  12. DECITABINE [Suspect]
     Dosage: 20 MILLIGRAM/SQ. METER
     Route: 065
     Dates: start: 20111018
  13. DECITABINE [Suspect]
     Dosage: 20 MILLIGRAM/SQ. METER
     Route: 065
     Dates: start: 20111020, end: 20120224
  14. ASPIRIN [Concomitant]
     Dosage: 81 MILLIGRAM
     Route: 065
  15. MARINOL [Concomitant]
     Dosage: 5 MILLIGRAM
     Route: 048
  16. DRONABINOL [Concomitant]
     Dosage: 5 MILLIGRAM
     Route: 048
  17. REVLIMID [Suspect]
     Dosage: 10 MILLIGRAM
     Route: 048
     Dates: start: 20111221
  18. REVLIMID [Suspect]
     Dosage: 10 MILLIGRAM
     Route: 048
     Dates: start: 20120220, end: 20120311
  19. TRIAMCINOLONE ACETONIDE [Concomitant]
     Dosage: .1 PERCENT
     Route: 061

REACTIONS (2)
  - ACUTE MYELOID LEUKAEMIA [None]
  - MYELODYSPLASTIC SYNDROME TRANSFORMATION [None]
